FAERS Safety Report 4313600-4 (Version None)
Quarter: 2004Q1

REPORT INFORMATION
  Report Type: 
  Country: None (occurrence: None)
  Receive Date: 20040305
  Receipt Date: 20040226
  Transmission Date: 20041129
  Serious: Yes (Hospitalization)
  Sender: FDA-Public Use
  Company Number: ENTC2004-0024

PATIENT
  Age: 56 Year
  Sex: Male

DRUGS (4)
  1. STALEVO 50 [Suspect]
     Indication: PARKINSON'S DISEASE
     Dosage: 50 MG/12.5 MG/200 MG 3 TIMES A DAY, ORAL
     Route: 048
     Dates: start: 20040206
  2. PARLODEL [Concomitant]
  3. KEMADREN [Concomitant]
  4. CLOZAPINE [Concomitant]

REACTIONS (4)
  - ABASIA [None]
  - DYSSTASIA [None]
  - MOVEMENT DISORDER [None]
  - OEDEMA PERIPHERAL [None]
